FAERS Safety Report 11858740 (Version 1)
Quarter: 2015Q4

REPORT INFORMATION
  Report Type: Spontaneous
  Country: US (occurrence: US)
  Receive Date: 20151222
  Receipt Date: 20151222
  Transmission Date: 20160305
  Serious: No
  Sender: FDA-Public Use
  Company Number: US-ASTRAZENECA-2015SF26335

PATIENT
  Sex: Female

DRUGS (1)
  1. BYETTA [Suspect]
     Active Substance: EXENATIDE
     Dosage: 250 MCG / 2.4 ML PEN, 10 UG, TWO TIMES A DAY
     Route: 058

REACTIONS (4)
  - Injection site nodule [Unknown]
  - Product quality issue [Unknown]
  - Underdose [Unknown]
  - Expired device used [Unknown]
